FAERS Safety Report 26075607 (Version 1)
Quarter: 2025Q4

REPORT INFORMATION
  Report Type: Spontaneous
  Country: US (occurrence: None)
  Receive Date: 20251121
  Receipt Date: 20251121
  Transmission Date: 20260118
  Serious: Yes (Other)
  Sender: FDA-CTU
  Company Number: None

PATIENT
  Age: 66 Year
  Sex: Female
  Weight: 63.96 kg

DRUGS (1)
  1. BESREMI [Suspect]
     Active Substance: ROPEGINTERFERON ALFA-2B-NJFT
     Indication: Polycythaemia vera
     Route: 058
     Dates: start: 202312, end: 202405

REACTIONS (6)
  - Multisystem inflammatory syndrome [None]
  - Eczema [None]
  - Drug ineffective [None]
  - Therapy interrupted [None]
  - Pericarditis [None]
  - Atrial fibrillation [None]

NARRATIVE: CASE EVENT DATE: 20240101
